FAERS Safety Report 6551321-8 (Version None)
Quarter: 2010Q1

REPORT INFORMATION
  Report Type: 
  Country: None (occurrence: None)
  Receive Date: 20100120
  Receipt Date: 20100112
  Transmission Date: 20100710
  Serious: Yes (Other)
  Sender: FDA-Public Use
  Company Number: 2009SP042166

PATIENT
  Age: 72 Year
  Sex: Female
  Weight: 102 kg

DRUGS (1)
  1. ORGARAN [Suspect]
     Indication: THROMBOSIS PROPHYLAXIS
     Dosage: 750 IU; BID;SC
     Route: 058
     Dates: start: 20091214, end: 20091218

REACTIONS (2)
  - EMBOLISM [None]
  - UNDERDOSE [None]
